FAERS Safety Report 5336861-1 (Version None)
Quarter: 2007Q2

REPORT INFORMATION
  Report Type: 
  Country: None (occurrence: None)
  Receive Date: 20070524
  Receipt Date: 20070524
  Transmission Date: 20071010
  Serious: Yes (Other)
  Sender: FDA-Public Use
  Company Number: None

PATIENT
  Age: 44 Year
  Sex: Female
  Weight: 117.9352 kg

DRUGS (1)
  1. SERZONE [Suspect]
     Indication: DEPRESSION
     Dosage: UNKNOWN DAILY PO
     Route: 048
     Dates: start: 20000405, end: 20010707

REACTIONS (5)
  - AMNESIA [None]
  - COMA [None]
  - EXAGGERATED STARTLE RESPONSE [None]
  - HALLUCINATION, AUDITORY [None]
  - IMPAIRED WORK ABILITY [None]
